FAERS Safety Report 6943421-5 (Version None)
Quarter: 2010Q3

REPORT INFORMATION
  Report Type: 
  Country: None (occurrence: None)
  Receive Date: 20100823
  Receipt Date: 20100809
  Transmission Date: 20110219
  Serious: Yes (Other)
  Sender: FDA-Public Use
  Company Number: 666293

PATIENT
  Age: 26 Year
  Sex: Female

DRUGS (5)
  1. (NORADRENALINE TARTRATE) [Suspect]
     Indication: HYPOTENSION
     Dosage: 4.5 MG MILLIGRAM(S), INTRAVENOUS BOLUS
     Route: 040
  2. (NORADRENALINE TARTRATE) [Suspect]
     Indication: HYPOTENSION
     Dosage: 10 UG/MIN INTRAVENOUS DRIP
     Route: 041
  3. MIDAZOLAM HCL [Concomitant]
  4. SODIUM CHLORIDE [Concomitant]
  5. EPINEPHRINE [Concomitant]

REACTIONS (9)
  - ASPIRATION [None]
  - ATRIAL FIBRILLATION [None]
  - CARDIAC DISORDER [None]
  - CARDIOMYOPATHY [None]
  - HAEMODYNAMIC INSTABILITY [None]
  - HYPERTENSION [None]
  - HYPOTENSION [None]
  - INCORRECT DOSE ADMINISTERED BY DEVICE [None]
  - STRESS CARDIOMYOPATHY [None]
